FAERS Safety Report 5070277-0 (Version None)
Quarter: 2006Q3

REPORT INFORMATION
  Report Type: 
  Country: None (occurrence: None)
  Receive Date: 20060731
  Receipt Date: 20060719
  Transmission Date: 20061208
  Serious: Yes (Life-Threatening, Hospitalization)
  Sender: FDA-Public Use
  Company Number: 2006-01756

PATIENT
  Age: 61 Year
  Sex: Male
  Weight: 86 kg

DRUGS (7)
  1. VELCADE [Suspect]
     Indication: T-CELL LYMPHOMA
     Dosage: 3.00 MG
     Dates: start: 20060623, end: 20060627
  2. PREDNISONE [Suspect]
     Indication: T-CELL LYMPHOMA
     Dosage: 120.00
     Dates: start: 20060623, end: 20060627
  3. CYCLOPHOSPHAMIDE [Suspect]
     Indication: T-CELL LYMPHOMA
     Dosage: 2400.00 MG
     Dates: start: 20060623, end: 20060623
  4. DOXIL [Suspect]
     Indication: T-CELL LYMPHOMA
     Dosage: 150.00 MG
     Dates: start: 20060623, end: 20060623
  5. VINCRISTINE [Suspect]
     Indication: T-CELL LYMPHOMA
     Dosage: 4.00 MG
     Dates: start: 20060623, end: 20060627
  6. BLEOMYCIN [Suspect]
     Indication: T-CELL LYMPHOMA
     Dosage: 10.00 IU
     Dates: start: 20060623, end: 20060627
  7. LENOGRASTIM (LENOGRASTIM) [Suspect]
     Indication: T-CELL LYMPHOMA
     Dates: start: 20060628, end: 20060630

REACTIONS (1)
  - INAPPROPRIATE ANTIDIURETIC HORMONE SECRETION [None]
